FAERS Safety Report 8298794 (Version 5)
Quarter: 2013Q1

REPORT INFORMATION
  Report Type: Spontaneous
  Country: US (occurrence: US)
  Receive Date: 20111219
  Receipt Date: 20130116
  Transmission Date: 20140127
  Serious: Yes (Other)
  Sender: FDA-Public Use
  Company Number: US-ASTRAZENECA-2011SE27863

PATIENT
  Age: 58 Year
  Sex: Female
  Weight: 86.2 kg

DRUGS (8)
  1. NEXIUM [Suspect]
     Route: 048
  2. TOPROL XL [Suspect]
     Route: 048
  3. CRESTOR [Suspect]
     Indication: BLOOD CHOLESTEROL INCREASED
     Route: 048
     Dates: start: 2010
  4. CRESTOR [Suspect]
     Indication: BLOOD CHOLESTEROL INCREASED
     Route: 048
  5. UNSPECIFIED BLOOD PRESSURE MEDICATION [Concomitant]
     Indication: BLOOD PRESSURE
  6. SUGAR MEDICATION [Concomitant]
     Indication: BLOOD GLUCOSE ABNORMAL
  7. VITAMIN D [Concomitant]
  8. ASA CHILDREN [Concomitant]
     Dosage: DAILY

REACTIONS (8)
  - Fall [Unknown]
  - Hand fracture [Unknown]
  - Upper limb fracture [Unknown]
  - Muscle fatigue [Unknown]
  - Fatigue [Unknown]
  - Myalgia [Unknown]
  - Laziness [Unknown]
  - Accident [Unknown]
